FAERS Safety Report 19872956 (Version 1)
Quarter: 2021Q3

REPORT INFORMATION
  Report Type: Spontaneous
  Country: US (occurrence: US)
  Receive Date: 20210923
  Receipt Date: 20210923
  Transmission Date: 20211014
  Serious: Yes (Other)
  Sender: FDA-Public Use
  Company Number: None

PATIENT
  Age: 60 Year
  Sex: Female
  Weight: 89.7 kg

DRUGS (6)
  1. ENOXAPARIN 40 MG BID SUBQ [Concomitant]
     Dates: start: 20210916
  2. LORAZEPAM 0.5 MG PO Q6H PRN ANXIETY [Concomitant]
     Dates: start: 20210918
  3. BARICITINIB. [Suspect]
     Active Substance: BARICITINIB
     Indication: COVID-19
     Route: 048
     Dates: start: 20210917, end: 20210922
  4. ACYCLOVIR 800 MG PO DAILY [Concomitant]
     Dates: start: 20210916
  5. DEXAMETHASONE 10 MG INJ DAILY [Concomitant]
     Dates: start: 20210916
  6. LEVOTHYROXINE 50 MCG PO DAILY [Concomitant]
     Dates: start: 20210916, end: 20210922

REACTIONS (1)
  - Deep vein thrombosis [None]

NARRATIVE: CASE EVENT DATE: 20210922
